FAERS Safety Report 16623602 (Version 1)
Quarter: 2019Q3

REPORT INFORMATION
  Report Type: Report from Study
  Country: TH (occurrence: TH)
  Receive Date: 20190724
  Receipt Date: 20190724
  Transmission Date: 20191004
  Serious: Yes (Other)
  Sender: FDA-Public Use
  Company Number: TH-TEVA-2019-TH-1081503

PATIENT
  Sex: Female

DRUGS (2)
  1. CARBOPLATIN. [Suspect]
     Active Substance: CARBOPLATIN
     Indication: RETINOBLASTOMA
     Dosage: THE PATIENT RECEIVED TOTAL 4 SESSIONS OF CARBOPLATIN, WHICH WAS INFUSED OVER A DURATION OF 20 MIN...
     Route: 013
  2. MELPHALAN. [Suspect]
     Active Substance: MELPHALAN
     Indication: RETINOBLASTOMA
     Dosage: THE PATIENT RECEIVED TOTAL 3 SESSIONS OF MELPHALAN, WHICH WAS INFUSED OVER A DURATION OF 20 MINUTES.
     Route: 013

REACTIONS (1)
  - Transient ischaemic attack [Recovered/Resolved]
